FAERS Safety Report 4911985-9 (Version None)
Quarter: 2006Q1

REPORT INFORMATION
  Report Type: 
  Country: None (occurrence: None)
  Receive Date: 20060213
  Receipt Date: 20060130
  Transmission Date: 20060701
  Serious: Yes (Hospitalization)
  Sender: FDA-Public Use
  Company Number: 2006000028

PATIENT
  Age: 27 Year
  Sex: Female

DRUGS (4)
  1. DEPO-PROVERA [Suspect]
     Indication: CONTRACEPTION
     Dosage: 150 MG (150 MG, 1ST INJECTION, TRIMESTRAL)
     Dates: start: 20051202, end: 20051202
  2. METHERGINE [Concomitant]
  3. PROPRANOLOL [Concomitant]
  4. DIAZEPAM [Concomitant]

REACTIONS (10)
  - ACNE [None]
  - APPLICATION SITE PAIN [None]
  - BREAST PAIN [None]
  - DYSPHONIA [None]
  - HEADACHE [None]
  - HELMINTHIC INFECTION [None]
  - MENORRHAGIA [None]
  - NAUSEA [None]
  - SOMNOLENCE [None]
  - UTERINE DISORDER [None]
